FAERS Safety Report 7054742-2 (Version None)
Quarter: 2010Q4

REPORT INFORMATION
  Report Type: 
  Country: None (occurrence: None)
  Receive Date: 20101018
  Receipt Date: 20101001
  Transmission Date: 20110411
  Serious: Yes (Death)
  Sender: FDA-Public Use
  Company Number: AMAG201000370

PATIENT
  Age: 67 Year
  Sex: Female
  Weight: 72.6 kg

DRUGS (10)
  1. FERAHEME [Suspect]
     Indication: IRON DEFICIENCY ANAEMIA
     Dosage: 510 MG, ADMINISTERED OVER 25 SECONDS, INTRAVEOUS
     Route: 042
     Dates: start: 20101001, end: 20101001
  2. ULTRAM [Concomitant]
  3. PREMARIN [Concomitant]
  4. EVOXAC [Concomitant]
  5. PLAQUENIL [Concomitant]
  6. HUMALOG MIX (INSULIN LISPRO, INSULIN LISPRO PROTAMINE SUSPENSION) [Concomitant]
  7. ALLOPURINOL [Concomitant]
  8. BENICAR HCT (HYDROCHLOROTHIAZIDE, OLMESARTAN MEDOXIMIL) [Concomitant]
  9. COREG [Concomitant]
  10. NORVASC [Concomitant]

REACTIONS (17)
  - ANAPHYLACTIC REACTION [None]
  - CARDIAC ARREST [None]
  - CHEST PAIN [None]
  - CONVULSION [None]
  - DEPRESSED LEVEL OF CONSCIOUSNESS [None]
  - DYSPNOEA [None]
  - EXTREMITY CONTRACTURE [None]
  - EYE ROLLING [None]
  - HYPERHIDROSIS [None]
  - HYPERSENSITIVITY [None]
  - HYPOGLYCAEMIA [None]
  - NAUSEA [None]
  - PULMONARY EMBOLISM [None]
  - RESPIRATORY FAILURE [None]
  - SYNCOPE [None]
  - VENTRICULAR FIBRILLATION [None]
  - VERTIGO [None]
